FAERS Safety Report 25070491 (Version 2)
Quarter: 2025Q2

REPORT INFORMATION
  Report Type: Report from Study
  Country: US (occurrence: US)
  Receive Date: 20250312
  Receipt Date: 20250516
  Transmission Date: 20250716
  Serious: Yes (Other)
  Sender: NOVARTIS
  Company Number: US-002147023-NVSC2025US040377

PATIENT
  Sex: Female

DRUGS (1)
  1. KESIMPTA [Suspect]
     Active Substance: OFATUMUMAB
     Indication: Product used for unknown indication
     Route: 065

REACTIONS (14)
  - Multiple sclerosis relapse [Unknown]
  - Polymenorrhoea [Unknown]
  - Memory impairment [Unknown]
  - Headache [Unknown]
  - Hangover [Unknown]
  - Diplopia [Unknown]
  - Pain [Unknown]
  - Rhinorrhoea [Unknown]
  - Arthralgia [Unknown]
  - Urticaria [Unknown]
  - Hyperkeratosis [Recovered/Resolved]
  - Chest discomfort [Unknown]
  - Dyspnoea [Unknown]
  - Gastrointestinal disorder [Unknown]
